FAERS Safety Report 4356577-8 (Version None)
Quarter: 2004Q2

REPORT INFORMATION
  Report Type: 
  Country: None (occurrence: None)
  Receive Date: 20040512
  Receipt Date: 20040506
  Transmission Date: 20050107
  Serious: Yes (Death, Hospitalization)
  Sender: FDA-Public Use
  Company Number: PHHO2004VE06659

PATIENT
  Age: 58 Year
  Sex: Male

DRUGS (3)
  1. NEORAL [Suspect]
     Indication: TRANSPLANT
     Dosage: 200 MG / DAY
     Route: 048
  2. CELLCEPT [Suspect]
     Indication: TRANSPLANT
     Dosage: 1500 MG / DAY
     Route: 048
  3. PREDNISONE [Suspect]
     Indication: TRANSPLANT
     Dosage: 10 MG / DAY
     Route: 048

REACTIONS (1)
  - PANCREATITIS ACUTE [None]
